FAERS Safety Report 8558780-X (Version None)
Quarter: 2012Q3

REPORT INFORMATION
  Report Type: 
  Country: None (occurrence: None)
  Receive Date: 20120801
  Receipt Date: 20120720
  Transmission Date: 20120928
  Serious: Yes (Hospitalization, Disabling, Other)
  Sender: FDA-Public Use
  Company Number: US-009507513-1205USA02851

PATIENT

DRUGS (2)
  1. FOSAMAX PLUS D [Suspect]
     Indication: OSTEOPOROSIS
     Route: 048
  2. FOSAMAX [Suspect]
     Indication: OSTEOPOROSIS
     Route: 048
     Dates: start: 20000101

REACTIONS (9)
  - GASTRITIS [None]
  - LOW TURNOVER OSTEOPATHY [None]
  - ORAL SURGERY [None]
  - FEMUR FRACTURE [None]
  - LOWER LIMB FRACTURE [None]
  - HYPERTENSION [None]
  - DENTAL IMPLANTATION [None]
  - OSTEOPOROSIS [None]
  - HYPOTHYROIDISM [None]
